FAERS Safety Report 4371432-5 (Version None)
Quarter: 2004Q2

REPORT INFORMATION
  Report Type: 
  Country: None (occurrence: None)
  Receive Date: 20040607
  Receipt Date: 20040527
  Transmission Date: 20050107
  Serious: Yes (Death)
  Sender: FDA-Public Use
  Company Number: PHRM2004FR01948

PATIENT
  Age: 94 Year
  Sex: Male

DRUGS (5)
  1. EXELON [Suspect]
     Indication: DEMENTIA
     Dosage: 1.5 MG, BID
     Route: 048
     Dates: start: 20040501
  2. TRIATEC [Concomitant]
     Indication: HYPERTENSION
     Route: 048
  3. DOLIPRANE [Concomitant]
     Route: 048
  4. DI-ANTALVIC [Concomitant]
     Route: 048
  5. OXYGEN THERAPY [Concomitant]
     Indication: CHRONIC OBSTRUCTIVE AIRWAYS DISEASE

REACTIONS (1)
  - RESPIRATORY FAILURE [None]
